FAERS Safety Report 4310924-1 (Version None)
Quarter: 2004Q1

REPORT INFORMATION
  Report Type: 
  Country: None (occurrence: None)
  Receive Date: 20040302
  Receipt Date: 20040224
  Transmission Date: 20041129
  Serious: Yes (Death, Hospitalization, Other)
  Sender: FDA-Public Use
  Company Number: US-JNJFOC-20040100495

PATIENT
  Age: 77 Year
  Sex: Male

DRUGS (4)
  1. DOXIL [Suspect]
     Indication: MULTIPLE MYELOMA
     Dosage: 50 MG, INTRAVENOUS
     Route: 042
     Dates: start: 20031227, end: 20031227
  2. VINCRISTINE [Suspect]
     Indication: MULTIPLE MYELOMA
     Dosage: X1 CYCLE
     Dates: start: 20031227, end: 20031227
  3. DECADRON [Suspect]
     Indication: MULTIPLE MYELOMA
     Dosage: X1 CYCLE
     Dates: start: 20031227, end: 20031227
  4. ZOMETA [Concomitant]

REACTIONS (9)
  - ATRIAL FIBRILLATION [None]
  - CARDIAC FAILURE CONGESTIVE [None]
  - HYPOTENSION [None]
  - MUCOSAL INFLAMMATION [None]
  - NEUTROPENIA [None]
  - PULMONARY FIBROSIS [None]
  - RENAL FAILURE [None]
  - RESPIRATORY FAILURE [None]
  - SEPSIS [None]
